FAERS Safety Report 17178306 (Version 2)
Quarter: 2020Q1

REPORT INFORMATION
  Report Type: Spontaneous
  Country: IT (occurrence: IT)
  Receive Date: 20191219
  Receipt Date: 20200106
  Transmission Date: 20200409
  Serious: Yes (Other)
  Sender: FDA-Public Use
  Company Number: IT-PFIZER INC-2019542771

PATIENT
  Sex: Male

DRUGS (5)
  1. RAPAMUNE [Suspect]
     Active Substance: SIROLIMUS
     Dosage: UNK
     Route: 065
  2. RAPAMUNE [Suspect]
     Active Substance: SIROLIMUS
     Indication: CHRONIC GRAFT VERSUS HOST DISEASE
     Dosage: UNK
     Route: 065
     Dates: end: 20161128
  3. PDN [Suspect]
     Active Substance: PREDNISOLONE ACETATE
     Indication: CHRONIC GRAFT VERSUS HOST DISEASE
     Dosage: UNK
     Route: 065
     Dates: end: 20180727
  4. RUXOLITINIB [Suspect]
     Active Substance: RUXOLITINIB
     Indication: CHRONIC GRAFT VERSUS HOST DISEASE
     Dosage: 5 MG, 2X/DAY
     Route: 065
     Dates: start: 20160414
  5. PDN [Suspect]
     Active Substance: PREDNISOLONE ACETATE
     Dosage: UNK
     Route: 065

REACTIONS (1)
  - Pneumonia cytomegaloviral [Unknown]

NARRATIVE: CASE EVENT DATE: 20160414
